FAERS Safety Report 6128773-0 (Version None)
Quarter: 2009Q1

REPORT INFORMATION
  Report Type: 
  Country: None (occurrence: None)
  Receive Date: 20090323
  Receipt Date: 20090318
  Transmission Date: 20090719
  Serious: Yes (Life-Threatening, Hospitalization)
  Sender: FDA-Public Use
  Company Number: DE-GILEAD-2009-0020291

PATIENT
  Sex: Male
  Weight: 63 kg

DRUGS (14)
  1. ATRIPLA [Suspect]
     Route: 048
     Dates: start: 20080201, end: 20090212
  2. PYRIMETHAMINE TAB [Suspect]
  3. VASOPRESSIN [Concomitant]
  4. JONOSTERIL [Concomitant]
  5. PANTOPRAZOLE SODIUM [Concomitant]
  6. FLUDROCORTISONE [Concomitant]
  7. HYDROCORTISONE [Concomitant]
  8. FOLIC ACID [Concomitant]
  9. CLINDAMYCIN HCL [Concomitant]
  10. LEVOTHYROXINE SODIUM [Concomitant]
  11. ENOXAPARIN [Concomitant]
  12. COTRIM [Concomitant]
  13. CIPROFLOXACIN [Concomitant]
  14. VALCYTE [Concomitant]

REACTIONS (9)
  - BRAIN OEDEMA [None]
  - CHOREA [None]
  - COMA [None]
  - DIABETES INSIPIDUS [None]
  - FANCONI SYNDROME ACQUIRED [None]
  - HYPOPITUITARISM [None]
  - RASH MACULO-PAPULAR [None]
  - RENAL TUBULAR DISORDER [None]
  - RESPIRATORY FAILURE [None]
